FAERS Safety Report 14337033 (Version 1)
Quarter: 2017Q4

REPORT INFORMATION
  Report Type: Spontaneous
  Country: US (occurrence: US)
  Receive Date: 20171228
  Receipt Date: 20171228
  Transmission Date: 20180321
  Serious: Yes (Other)
  Sender: FDA-Public Use
  Company Number: None

PATIENT
  Age: 47 Year
  Sex: Female
  Weight: 72 kg

DRUGS (4)
  1. MULTIVITAMIN [Concomitant]
     Active Substance: VITAMINS
  2. ZELNORM [Suspect]
     Active Substance: TEGASEROD MALEATE
     Indication: IRRITABLE BOWEL SYNDROME
     Route: 048
     Dates: start: 20070101, end: 20070221
  3. IBUPROFEN. [Concomitant]
     Active Substance: IBUPROFEN
  4. ZELNORM [Suspect]
     Active Substance: TEGASEROD MALEATE
     Indication: CONSTIPATION
     Route: 048
     Dates: start: 20070101, end: 20070221

REACTIONS (7)
  - Chest discomfort [None]
  - Back pain [None]
  - Cardiac disorder [None]
  - Photopsia [None]
  - Renal pain [None]
  - Influenza [None]
  - Therapy cessation [None]

NARRATIVE: CASE EVENT DATE: 20070331
